FAERS Safety Report 9231785 (Version 1)
Quarter: 2013Q2

REPORT INFORMATION
  Report Type: Spontaneous
  Country: US (occurrence: US)
  Receive Date: 20130415
  Receipt Date: 20130415
  Transmission Date: 20140414
  Serious: Yes (Other)
  Sender: FDA-Public Use
  Company Number: US-PFIZER INC-2013117881

PATIENT
  Age: 53 Year
  Sex: Female
  Weight: 68.03 kg

DRUGS (8)
  1. NEURONTIN [Suspect]
     Indication: NEURALGIA
     Dosage: 200 MG, 2X/DAY
  2. REQUIP [Suspect]
     Dosage: UNK
  3. TAMOXIFEN CITRATE [Suspect]
     Indication: BREAST CANCER FEMALE
     Dosage: UNK
  4. ELAVIL [Suspect]
     Dosage: UNK
  5. CYMBALTA [Suspect]
     Dosage: UNK
  6. NORTRIPTYLINE [Suspect]
     Dosage: UNK
  7. MIRAPEX [Suspect]
     Dosage: UNK
  8. SEROQUEL [Suspect]
     Dosage: UNK

REACTIONS (5)
  - Breast cancer female [Unknown]
  - Weight increased [Unknown]
  - Feeling abnormal [Unknown]
  - Tic [Unknown]
  - Drug ineffective [Unknown]
